FAERS Safety Report 4400521-1 (Version None)
Quarter: 2004Q3

REPORT INFORMATION
  Report Type: 
  Country: None (occurrence: None)
  Receive Date: 20040716
  Receipt Date: 20040716
  Transmission Date: 20050211
  Serious: No
  Sender: FDA-Public Use
  Company Number: None

PATIENT
  Sex: Male
  Weight: 98.8842 kg

DRUGS (1)
  1. AUGMENTIN '500' [Suspect]
     Indication: OTITIS MEDIA
     Dosage: 1 TABLET TID ORAL
     Route: 048
     Dates: start: 20040420, end: 20040504

REACTIONS (3)
  - CHOLESTASIS [None]
  - HEPATIC FAILURE [None]
  - PRURITUS [None]
